FAERS Safety Report 15265711 (Version 1)
Quarter: 2018Q3

REPORT INFORMATION
  Report Type: Spontaneous
  Country: US (occurrence: US)
  Receive Date: 20180810
  Receipt Date: 20180810
  Transmission Date: 20181010
  Serious: Yes (Hospitalization)
  Sender: FDA-Public Use
  Company Number: US-TEVA-2018-US-938870

PATIENT
  Age: 60 Year
  Sex: Male

DRUGS (2)
  1. NEFAZODONE [Suspect]
     Active Substance: NEFAZODONE
     Route: 065
     Dates: start: 1996
  2. DILTAZEM [Concomitant]

REACTIONS (6)
  - Abdominal pain [Unknown]
  - Haematemesis [Unknown]
  - Gastritis [Unknown]
  - Heart rate decreased [Recovered/Resolved]
  - Heart rate irregular [Recovered/Resolved]
  - Diarrhoea [Unknown]
